FAERS Safety Report 6369690-0 (Version None)
Quarter: 2009Q3

REPORT INFORMATION
  Report Type: 
  Country: None (occurrence: None)
  Receive Date: 20090923
  Receipt Date: 20090918
  Transmission Date: 20100115
  Serious: Yes (Other)
  Sender: FDA-Public Use
  Company Number: GB-PFIZER INC-2007063770

PATIENT

DRUGS (2)
  1. VFEND [Suspect]
  2. VINCRISTINE [Concomitant]

REACTIONS (1)
  - NEUROTOXICITY [None]
